FAERS Safety Report 23355186 (Version 2)
Quarter: 2024Q1

REPORT INFORMATION
  Report Type: Report from Study
  Country: TR (occurrence: TR)
  Receive Date: 20240102
  Receipt Date: 20240116
  Transmission Date: 20240410
  Serious: Yes (Death, Hospitalization)
  Sender: FDA-Public Use
  Company Number: TR-ABBVIE-5564201

PATIENT
  Age: 82 Year
  Sex: Female
  Weight: 60 kg

DRUGS (8)
  1. CARBIDOPA\LEVODOPA [Suspect]
     Active Substance: CARBIDOPA\LEVODOPA
     Indication: Parkinson^s disease
     Dosage: MORNING DOSE (ML): 8.00 CONTINIOUS DOSE (ML): 5.50 EXTRA DOSE (ML): 1.20
     Route: 050
     Dates: start: 20220422
  2. CARBIDOPA\LEVODOPA [Suspect]
     Active Substance: CARBIDOPA\LEVODOPA
  3. SEROQUEL [Concomitant]
     Active Substance: QUETIAPINE FUMARATE
     Indication: Parkinson^s disease
     Dosage: FREQUENCY TEXT: 1X1/2?FORM STRENGTH: 25 MILLIGRAM
     Dates: start: 2018
  4. STALEVO [Concomitant]
     Active Substance: CARBIDOPA\ENTACAPONE\LEVODOPA
     Indication: Parkinson^s disease
     Dosage: 100 MILLIGRAM
     Dates: start: 2008
  5. DOPADEX SR [Concomitant]
     Indication: Parkinson^s disease
     Dosage: 200 MILLIGRAM
     Dates: start: 20190201
  6. AMANTADINE SULFATE [Concomitant]
     Active Substance: AMANTADINE SULFATE
     Indication: Parkinson^s disease
     Dosage: 600 MILLIGRAM?FREQUENCY TEXT: 3X2
     Dates: start: 2012
  7. MELATONIN [Concomitant]
     Active Substance: MELATONIN
     Indication: Parkinson^s disease
     Dosage: STRENGTH 3 MILLIGRAM
     Dates: start: 2012
  8. COENZYME Q10 [Concomitant]
     Active Substance: DIETARY SUPPLEMENT\UBIDECARENONE
     Indication: Parkinson^s disease
     Dosage: 200 MILLIGRAM
     Dates: start: 2018

REACTIONS (2)
  - Pneumonia [Fatal]
  - General physical health deterioration [Unknown]

NARRATIVE: CASE EVENT DATE: 20231225
